FAERS Safety Report 13338872 (Version 1)
Quarter: 2017Q1

REPORT INFORMATION
  Report Type: Spontaneous
  Country: DE (occurrence: DE)
  Receive Date: 20170315
  Receipt Date: 20170315
  Transmission Date: 20170428
  Serious: Yes (Hospitalization)
  Sender: FDA-Public Use
  Company Number: US-ASTRAZENECA-2017SE26981

PATIENT
  Age: 9 Week
  Sex: Male
  Weight: 4.2 kg

DRUGS (16)
  1. SYNAGIS [Suspect]
     Active Substance: PALIVIZUMAB
     Indication: SCIMITAR SYNDROME
     Dosage: FIRST INJECTION ON AN UNKNOWN DATE AND SECOND INJECTION ON 03-JAN-2017
     Route: 030
     Dates: end: 20170103
  2. SYNAGIS [Suspect]
     Active Substance: PALIVIZUMAB
     Indication: ATRIAL SEPTAL DEFECT
     Route: 030
  3. MICOTAR [Concomitant]
     Indication: PRODUCT USED FOR UNKNOWN INDICATION
  4. SYNAGIS [Suspect]
     Active Substance: PALIVIZUMAB
     Indication: CATHETERISATION CARDIAC
     Dosage: FIRST INJECTION ON AN UNKNOWN DATE AND SECOND INJECTION ON 03-JAN-2017
     Route: 030
     Dates: end: 20170103
  5. SPIRONOLACTON [Concomitant]
     Active Substance: SPIRONOLACTONE
     Indication: PRODUCT USED FOR UNKNOWN INDICATION
  6. SYNAGIS [Suspect]
     Active Substance: PALIVIZUMAB
     Indication: SCIMITAR SYNDROME
     Route: 030
  7. SYNAGIS [Suspect]
     Active Substance: PALIVIZUMAB
     Indication: CATHETERISATION CARDIAC
     Route: 030
  8. SYNAGIS [Suspect]
     Active Substance: PALIVIZUMAB
     Indication: VENTRICULAR SEPTAL DEFECT
     Dosage: FIRST INJECTION ON AN UNKNOWN DATE AND SECOND INJECTION ON 03-JAN-2017
     Route: 030
     Dates: end: 20170103
  9. SYNAGIS [Suspect]
     Active Substance: PALIVIZUMAB
     Indication: VENTRICULAR SEPTAL DEFECT
     Route: 030
  10. ESPUMISAN [Concomitant]
     Active Substance: DIMETHICONE
     Indication: PRODUCT USED FOR UNKNOWN INDICATION
  11. DEKRISTOL [Concomitant]
     Active Substance: CHOLECALCIFEROL
     Indication: PRODUCT USED FOR UNKNOWN INDICATION
     Dosage: 500.0IU UNKNOWN
  12. SALBUTAMOL [Concomitant]
     Active Substance: ALBUTEROL
     Indication: PRODUCT USED FOR UNKNOWN INDICATION
     Route: 055
  13. SYNAGIS [Suspect]
     Active Substance: PALIVIZUMAB
     Indication: ATRIAL SEPTAL DEFECT
     Dosage: FIRST INJECTION ON AN UNKNOWN DATE AND SECOND INJECTION ON 03-JAN-2017
     Route: 030
     Dates: end: 20170103
  14. SYNAGIS [Suspect]
     Active Substance: PALIVIZUMAB
     Indication: PULMONARY HYPOPLASIA
     Dosage: FIRST INJECTION ON AN UNKNOWN DATE AND SECOND INJECTION ON 03-JAN-2017
     Route: 030
     Dates: end: 20170103
  15. SYNAGIS [Suspect]
     Active Substance: PALIVIZUMAB
     Indication: PULMONARY HYPOPLASIA
     Route: 030
  16. LASIX [Concomitant]
     Active Substance: FUROSEMIDE
     Indication: PRODUCT USED FOR UNKNOWN INDICATION

REACTIONS (2)
  - Respiratory syncytial virus bronchiolitis [Not Recovered/Not Resolved]
  - Respiratory failure [Not Recovered/Not Resolved]

NARRATIVE: CASE EVENT DATE: 20170121
